FAERS Safety Report 18562176 (Version 2)
Quarter: 2020Q4

REPORT INFORMATION
  Report Type: Spontaneous
  Country: AT (occurrence: AT)
  Receive Date: 20201201
  Receipt Date: 20201210
  Transmission Date: 20210114
  Serious: Yes (Hospitalization, Other)
  Sender: FDA-Public Use
  Company Number: AT-AMGEN-AUTSP2020191926

PATIENT
  Sex: Female

DRUGS (5)
  1. PROLIA [Suspect]
     Active Substance: DENOSUMAB
     Indication: OSTEOPOROTIC FRACTURE
     Dosage: UNK, Q6MO
     Route: 058
     Dates: start: 2013, end: 2015
  2. CALCIDURAN VIT. D3 [Concomitant]
     Active Substance: CALCIUM CARBONATE\CHOLECALCIFEROL
     Dosage: 500 MG/800 IU, BID
  3. NOVALGIN (METAMIZOLE SODIUM) [Concomitant]
     Active Substance: METAMIZOLE SODIUM
     Dosage: UNK, BID
  4. OLEOVIT D3 [Concomitant]
     Active Substance: CHOLECALCIFEROL
     Dosage: S: 10 - 0 - 0 - 0
  5. DEFLAMAT [DICLOFENAC SODIUM] [Concomitant]
     Dosage: 75 MILLIGRAM, BID

REACTIONS (5)
  - Pain [Unknown]
  - Influenza like illness [Unknown]
  - Muscle spasms [Unknown]
  - Pathological fracture [Unknown]
  - Kyphosis [Unknown]

NARRATIVE: CASE EVENT DATE: 2016
